FAERS Safety Report 13131857 (Version 1)
Quarter: 2017Q1

REPORT INFORMATION
  Report Type: Report from Study
  Country: CA (occurrence: CA)
  Receive Date: 20170119
  Receipt Date: 20170119
  Transmission Date: 20170428
  Serious: Yes (Hospitalization, Other)
  Sender: FDA-Public Use
  Company Number: CA-JNJFOC-20161215534

PATIENT
  Age: 72 Year
  Sex: Male
  Weight: 53.9 kg

DRUGS (18)
  1. VITAMIN D [Concomitant]
     Active Substance: CHOLECALCIFEROL
     Route: 048
  2. FERROUS FUMARATE [Concomitant]
     Active Substance: FERROUS FUMARATE
     Dosage: EVERY NIGHT AT BEDTIME
     Route: 048
  3. ATORVASTATIN [Concomitant]
     Active Substance: ATORVASTATIN
     Dosage: EVERY NIGHT AT BEDTIME
     Route: 048
  4. FUROSEMIDE. [Concomitant]
     Active Substance: FUROSEMIDE
     Route: 048
  5. LEVOTHYROXINE. [Concomitant]
     Active Substance: LEVOTHYROXINE
     Route: 048
  6. UREA. [Concomitant]
     Active Substance: UREA
     Dosage: APPLY TO HEELS/ AS NECESSARY
     Route: 061
  7. DARZALEX [Suspect]
     Active Substance: DARATUMUMAB
     Indication: PLASMA CELL MYELOMA
     Route: 042
     Dates: start: 20161103, end: 20161124
  8. BACLOFEN. [Concomitant]
     Active Substance: BACLOFEN
     Dosage: EVERY 6 HOURS AS NECESSARY
     Route: 048
     Dates: end: 20161126
  9. INSULIN LISPRO [Concomitant]
     Active Substance: INSULIN LISPRO
     Dosage: THREE TIMES DAILY BEFORE MEAL
     Route: 058
  10. SENNA [Concomitant]
     Active Substance: SENNA LEAF\SENNOSIDES\SENNOSIDES A AND B
     Dosage: TWO TABLETS EVERY NIGHT AT BEDTIME
     Route: 048
  11. MAGNESIUM OXIDE. [Concomitant]
     Active Substance: MAGNESIUM OXIDE
     Route: 048
  12. DEXAMETHASONE. [Concomitant]
     Active Substance: DEXAMETHASONE
     Dosage: EVERY MORNING FOR FOUR DAYS
     Route: 048
     Dates: end: 20161126
  13. CALCITRIOL. [Concomitant]
     Active Substance: CALCITRIOL
     Dosage: EVERY NIGHT AT BEDTIME
     Route: 048
  14. EPREX [Concomitant]
     Active Substance: ERYTHROPOIETIN
     Dosage: 10000 UNITS GIVEN AT HEMODIALYSIS
     Route: 042
  15. CALCIUM [Concomitant]
     Active Substance: CALCIUM
     Dosage: 500/1000/1500MG
  16. ACYCLOVIR. [Concomitant]
     Active Substance: ACYCLOVIR
     Route: 048
  17. ASPIRIN. [Concomitant]
     Active Substance: ASPIRIN
     Route: 048
  18. QUININE SULFATE. [Concomitant]
     Active Substance: QUININE SULFATE
     Dosage: PRE- HD (PRE HEMODIALYSIS)
     Route: 048

REACTIONS (5)
  - Dyspnoea [Unknown]
  - Thrombocytopenia [Unknown]
  - Hyperphosphataemia [Recovered/Resolved]
  - Immunosuppression [Unknown]
  - Pneumocystis jirovecii pneumonia [Recovered/Resolved]

NARRATIVE: CASE EVENT DATE: 20161107
